FAERS Safety Report 8595050-8 (Version None)
Quarter: 2012Q3

REPORT INFORMATION
  Report Type: 
  Country: None (occurrence: None)
  Receive Date: 20120815
  Receipt Date: 20120810
  Transmission Date: 20120928
  Serious: Yes (Other)
  Sender: FDA-Public Use
  Company Number: US-PFIZER INC-2012195999

PATIENT
  Age: 58 Year
  Sex: Female
  Weight: 104 kg

DRUGS (2)
  1. VICTOZA [Concomitant]
     Indication: DIABETES MELLITUS
     Dosage: UNK
  2. NEURONTIN [Suspect]
     Indication: NERVE INJURY
     Dosage: UNK, 4X/DAY

REACTIONS (3)
  - SPINAL FUSION SURGERY [None]
  - DIABETIC NEUROPATHY [None]
  - FIBROMYALGIA [None]
